FAERS Safety Report 10476046 (Version 1)
Quarter: 2014Q3

REPORT INFORMATION
  Report Type: Spontaneous
  Country: US (occurrence: None)
  Receive Date: 20140923
  Receipt Date: 20140923
  Transmission Date: 20150326
  Serious: Yes (Life-Threatening, Hospitalization)
  Sender: FDA-Public Use
  Company Number: IMP_07939_2014

PATIENT
  Age: 44 Year
  Sex: Female
  Weight: 59 kg

DRUGS (1)
  1. CHLOROQUINE PHOSPHATE. [Suspect]
     Active Substance: CHLOROQUINE PHOSPHATE
     Indication: PRODUCT USED FOR UNKNOWN INDICATION
     Dosage: 20 DF 1X
     Route: 048

REACTIONS (12)
  - Hallucination, auditory [None]
  - Cardiotoxicity [None]
  - Intentional overdose [None]
  - Exposure via ingestion [None]
  - Poisoning [None]
  - Hyperhidrosis [None]
  - Hypotension [None]
  - Nausea [None]
  - Vomiting [None]
  - Suicide attempt [None]
  - Abdominal pain [None]
  - Mental status changes [None]
